FAERS Safety Report 7438705-0 (Version None)
Quarter: 2011Q2

REPORT INFORMATION
  Report Type: 
  Country: None (occurrence: None)
  Receive Date: 20110426
  Receipt Date: 20110425
  Transmission Date: 20111010
  Serious: Yes (Other)
  Sender: FDA-Public Use
  Company Number: US-PFIZER INC-2011089220

PATIENT
  Sex: Male
  Weight: 92.971 kg

DRUGS (4)
  1. GEMFIBROZIL [Concomitant]
     Indication: BLOOD CHOLESTEROL INCREASED
     Dosage: UNK
  2. CALCIUM [Concomitant]
     Dosage: UNK
  3. LYRICA [Suspect]
     Indication: BACK PAIN
     Dosage: 50 MG, 3X/DAY
     Route: 048
     Dates: start: 20110301, end: 20110418
  4. ACETYLSALICYLIC ACID [Concomitant]
     Dosage: UNK, DAILY

REACTIONS (4)
  - VISION BLURRED [None]
  - WEIGHT DECREASED [None]
  - CONSTIPATION [None]
  - MALAISE [None]
